FAERS Safety Report 10226942 (Version 2)
Quarter: 2014Q2

REPORT INFORMATION
  Report Type: Spontaneous
  Country: JP (occurrence: JP)
  Receive Date: 20140610
  Receipt Date: 20140610
  Transmission Date: 20141212
  Serious: Yes (Death)
  Sender: FDA-Public Use
  Company Number: JP-ROCHE-1311681

PATIENT
  Age: 56 Year
  Sex: Female
  Weight: 39 kg

DRUGS (2)
  1. AVASTIN [Suspect]
     Indication: BREAST CANCER METASTATIC
     Dosage: TREATMENT LINE: 9
     Route: 041
     Dates: start: 20130716, end: 20130924
  2. TAXOL [Concomitant]
     Indication: BREAST CANCER METASTATIC
     Dosage: COMPLETED TREATMENT CYCLE NUMBER: 3
     Route: 041
     Dates: start: 20130716, end: 20130924

REACTIONS (3)
  - Bronchial fistula [Fatal]
  - Breast cancer [Fatal]
  - Infectious pleural effusion [Fatal]
